FAERS Safety Report 7298118-1 (Version None)
Quarter: 2011Q1

REPORT INFORMATION
  Report Type: 
  Country: None (occurrence: None)
  Receive Date: 20110217
  Receipt Date: 20110209
  Transmission Date: 20110831
  Serious: Yes (Hospitalization, Other)
  Sender: FDA-Public Use
  Company Number: FR-JNJFOC-20110203366

PATIENT
  Age: 33 Year
  Sex: Female

DRUGS (9)
  1. REMICADE [Suspect]
     Dosage: 1ST DOSE
     Route: 042
  2. OROCAL [Suspect]
     Indication: PROPHYLAXIS
  3. REMICADE [Suspect]
     Indication: COLITIS ULCERATIVE
     Dosage: 1ST DOSE
     Route: 042
  4. REMICADE [Suspect]
     Dosage: 1ST DOSE
     Route: 042
  5. COLOFOAM [Suspect]
     Indication: PROCTOCOLITIS
     Route: 054
  6. NEXIUM [Suspect]
     Indication: PROPHYLAXIS
     Route: 048
  7. SOLUPRED [Suspect]
     Indication: PROCTOCOLITIS
     Route: 048
  8. REMICADE [Suspect]
     Indication: PROCTOCOLITIS
     Dosage: 1ST DOSE
     Route: 042
  9. FIVASA [Suspect]
     Indication: PROCTOCOLITIS

REACTIONS (4)
  - LISTERIOSIS [None]
  - DRUG EXPOSURE DURING PREGNANCY [None]
  - THREATENED LABOUR [None]
  - INTRA-UTERINE DEATH [None]
